FAERS Safety Report 12125590 (Version 15)
Quarter: 2019Q2

REPORT INFORMATION
  Report Type: Spontaneous
  Country: CA (occurrence: CA)
  Receive Date: 20160229
  Receipt Date: 20190426
  Transmission Date: 20190711
  Serious: Yes (Other)
  Sender: FDA-Public Use
  Company Number: CA-ROCHE-1717659

PATIENT
  Age: 41 Year
  Sex: Female

DRUGS (14)
  1. XOLAIR [Suspect]
     Active Substance: OMALIZUMAB
     Indication: ASTHMA
     Route: 058
     Dates: start: 20140415
  2. XOLAIR [Suspect]
     Active Substance: OMALIZUMAB
     Route: 058
     Dates: start: 20180117
  3. XOLAIR [Suspect]
     Active Substance: OMALIZUMAB
     Route: 058
     Dates: start: 20180731
  4. XOLAIR [Suspect]
     Active Substance: OMALIZUMAB
     Route: 058
     Dates: start: 2018
  5. XOLAIR [Suspect]
     Active Substance: OMALIZUMAB
     Dosage: UNK
     Route: 058
     Dates: start: 20160126
  6. XOLAIR [Suspect]
     Active Substance: OMALIZUMAB
     Dosage: UNK
     Route: 058
     Dates: start: 20170707
  7. XOLAIR [Suspect]
     Active Substance: OMALIZUMAB
     Dosage: UNK
     Route: 058
     Dates: start: 20161125
  8. XOLAIR [Suspect]
     Active Substance: OMALIZUMAB
     Dosage: UNK
     Route: 058
     Dates: start: 20170120
  9. XOLAIR [Suspect]
     Active Substance: OMALIZUMAB
     Route: 058
     Dates: start: 20190326
  10. XOLAIR [Suspect]
     Active Substance: OMALIZUMAB
     Dosage: UNK
     Route: 058
     Dates: start: 20160419
  11. XOLAIR [Suspect]
     Active Substance: OMALIZUMAB
     Dosage: UNK
     Route: 058
     Dates: start: 20161221
  12. VENTOLIN [Concomitant]
     Active Substance: ALBUTEROL SULFATE
     Indication: PRODUCT USED FOR UNKNOWN INDICATION
     Dosage: (2 PUFF) Q2MO
     Route: 065
  13. VENTOLIN [Concomitant]
     Active Substance: ALBUTEROL SULFATE
     Dosage: 2 DF (2 PUFFS), QD
     Route: 065
  14. XOLAIR [Suspect]
     Active Substance: OMALIZUMAB
     Route: 058
     Dates: start: 20151229

REACTIONS (22)
  - Chest discomfort [Unknown]
  - Pruritus [Unknown]
  - Forced expiratory volume decreased [Recovering/Resolving]
  - Hypersensitivity [Not Recovered/Not Resolved]
  - Fatigue [Unknown]
  - Vision blurred [Recovered/Resolved]
  - Respiratory tract congestion [Recovering/Resolving]
  - Viral infection [Recovering/Resolving]
  - Asthenia [Unknown]
  - Polyp [Unknown]
  - Headache [Unknown]
  - Sinusitis [Recovered/Resolved]
  - Feeling abnormal [Unknown]
  - Weight fluctuation [Unknown]
  - Respiratory tract infection [Unknown]
  - Asthma [Not Recovered/Not Resolved]
  - Nasopharyngitis [Unknown]
  - Emphysema [Unknown]
  - Obstructive airways disorder [Unknown]
  - Lung disorder [Unknown]
  - Sensitivity to weather change [Unknown]
  - Lower respiratory tract infection [Recovering/Resolving]

NARRATIVE: CASE EVENT DATE: 201410
